FAERS Safety Report 9832726 (Version 5)
Quarter: 2014Q1

REPORT INFORMATION
  Report Type: Spontaneous
  Country: JP (occurrence: JP)
  Receive Date: 20140121
  Receipt Date: 20140206
  Transmission Date: 20141002
  Serious: Yes (Death, Hospitalization, Disabling)
  Sender: FDA-Public Use
  Company Number: JP-B.I. PHARMACEUTICALS,INC./RIDGEFIELD-2013-BI-42985NB

PATIENT
  Age: 83 Year
  Sex: Male
  Weight: 52.9 kg

DRUGS (4)
  1. PRADAXA [Suspect]
     Indication: ATRIAL FIBRILLATION
     Dosage: 220 MG
     Route: 048
     Dates: start: 20121215, end: 20130110
  2. HUMALOG MIX / INSULIN LISPRO(GENETICAL RECOMBINATION) [Concomitant]
     Indication: DIABETES MELLITUS
     Dosage: 14 U
     Route: 058
     Dates: start: 20111114, end: 20130110
  3. PURSENNID / SENNOSIDE [Concomitant]
     Indication: CONSTIPATION
     Route: 048
     Dates: start: 20121213, end: 20130110
  4. HANP / CARPERITIDE(GENETICAL RECOMBINATION) [Concomitant]
     Indication: CARDIAC FAILURE
     Route: 065
     Dates: start: 20121215

REACTIONS (3)
  - Sepsis [Fatal]
  - Cerebral haemorrhage [Unknown]
  - Decubitus ulcer [Not Recovered/Not Resolved]
